FAERS Safety Report 12917313 (Version 2)
Quarter: 2016Q4

REPORT INFORMATION
  Report Type: Report from Study
  Country: BE (occurrence: BE)
  Receive Date: 20161107
  Receipt Date: 20161220
  Transmission Date: 20170207
  Serious: Yes (Death, Other)
  Sender: FDA-Public Use
  Company Number: BE-BRISTOL-MYERS SQUIBB COMPANY-BMS-2016-091525

PATIENT
  Age: 56 Year
  Sex: Male

DRUGS (1)
  1. NIVOLUMAB [Suspect]
     Active Substance: NIVOLUMAB
     Indication: NON-SMALL CELL LUNG CANCER
     Dosage: 3 MG/KG, UNK,Q12WKS
     Route: 042
     Dates: start: 20160811, end: 20160927

REACTIONS (3)
  - Respiratory distress [Unknown]
  - Superior vena cava syndrome [Fatal]
  - Anxiety [Unknown]

NARRATIVE: CASE EVENT DATE: 20161010
